FAERS Safety Report 10192458 (Version 1)
Quarter: 2014Q2

REPORT INFORMATION
  Report Type: Spontaneous
  Country: US (occurrence: US)
  Receive Date: 20140523
  Receipt Date: 20140523
  Transmission Date: 20141212
  Serious: Yes (Hospitalization, Other)
  Sender: FDA-Public Use
  Company Number: US-ACTAVIS-2014-10979

PATIENT
  Age: 54 Year
  Sex: Male

DRUGS (4)
  1. TACROLIMUS (WATSON LABORATORIES) [Suspect]
     Indication: PRODUCT USED FOR UNKNOWN INDICATION
     Dosage: 0.5 MG, DAILY
     Route: 065
  2. BOCEPREVIR [Interacting]
     Indication: CHRONIC HEPATITIS C
     Dosage: UNKNOWN
     Route: 065
  3. RIBAVIRIN [Suspect]
     Indication: CHRONIC HEPATITIS C
     Dosage: UNKNOWN
     Route: 065
     Dates: start: 200906
  4. PEGINTERFERON ALFA-2B [Suspect]
     Indication: CHRONIC HEPATITIS C
     Dosage: UNKNOWN
     Route: 065
     Dates: start: 200906

REACTIONS (5)
  - Anaemia [Unknown]
  - Syncope [Recovered/Resolved]
  - Fatigue [Unknown]
  - Immunosuppressant drug level increased [Recovered/Resolved]
  - Drug interaction [Unknown]
